FAERS Safety Report 4599792-0 (Version None)
Quarter: 2005Q1

REPORT INFORMATION
  Report Type: 
  Country: None (occurrence: None)
  Receive Date: 20050304
  Receipt Date: 20050304
  Transmission Date: 20050727
  Serious: Yes (Other)
  Sender: FDA-Public Use
  Company Number: None

PATIENT
  Age: 58 Year
  Sex: Female
  Weight: 77.1115 kg

DRUGS (2)
  1. CRESTOR [Suspect]
     Indication: BLOOD CHOLESTEROL INCREASED
     Dosage: 10MG  1 A DAY
     Dates: start: 20041108, end: 20041114
  2. CRESTOR [Suspect]
     Indication: C-REACTIVE PROTEIN INCREASED
     Dosage: 10MG  1 A DAY
     Dates: start: 20041108, end: 20041114

REACTIONS (3)
  - ANXIETY [None]
  - FEELING ABNORMAL [None]
  - HEART RATE INCREASED [None]
